FAERS Safety Report 19929680 (Version 1)
Quarter: 2021Q4

REPORT INFORMATION
  Report Type: Spontaneous
  Country: US (occurrence: US)
  Receive Date: 20211007
  Receipt Date: 20211007
  Transmission Date: 20220303
  Serious: Yes (Other)
  Sender: FDA-Public Use
  Company Number: US-MYLANLABS-2021M1068837

PATIENT
  Sex: Female
  Weight: 51 kg

DRUGS (1)
  1. YUPELRI [Suspect]
     Active Substance: REVEFENACIN
     Indication: Cough
     Dosage: UNK, QD

REACTIONS (2)
  - Macular degeneration [Not Recovered/Not Resolved]
  - Deafness [Not Recovered/Not Resolved]
